FAERS Safety Report 7758313-1 (Version None)
Quarter: 2011Q3

REPORT INFORMATION
  Report Type: 
  Country: None (occurrence: None)
  Receive Date: 20110825
  Receipt Date: 20110701
  Transmission Date: 20111222
  Serious: No
  Sender: FDA-Public Use
  Company Number: 332482

PATIENT
  Age: 53 Year
  Sex: Female

DRUGS (2)
  1. VICTOZA [Suspect]
     Indication: GLUCOSE TOLERANCE IMPAIRED
     Dosage: 0.6 MG, QD, SUBCUTANEOUS
     Route: 058
     Dates: start: 20110630
  2. METFORMIN HCL [Concomitant]

REACTIONS (1)
  - INCORRECT DOSE ADMINISTERED [None]
